FAERS Safety Report 7677640-X (Version None)
Quarter: 2011Q3

REPORT INFORMATION
  Report Type: 
  Country: None (occurrence: None)
  Receive Date: 20110811
  Receipt Date: 20110805
  Transmission Date: 20111222
  Serious: Yes (Other)
  Sender: FDA-Public Use
  Company Number: GB-PFIZER INC-2011180699

PATIENT
  Sex: Male

DRUGS (1)
  1. REFACTO [Suspect]

REACTIONS (1)
  - FACTOR VIII INHIBITION [None]
